FAERS Safety Report 8645315 (Version 2)
Quarter: 2013Q4

REPORT INFORMATION
  Report Type: Spontaneous
  Country: JP (occurrence: JP)
  Receive Date: 20120702
  Receipt Date: 20131028
  Transmission Date: 20140711
  Serious: Yes (Death, Other)
  Sender: FDA-Public Use
  Company Number: JP-ASTELLAS-2011JP001125

PATIENT
  Age: 31 Year
  Sex: Female

DRUGS (5)
  1. PROGRAF [Suspect]
     Indication: IMMUNOSUPPRESSANT DRUG THERAPY
     Dosage: UNK
     Route: 065
  2. CELLCEPT                           /01275102/ [Concomitant]
     Indication: IMMUNOSUPPRESSANT DRUG THERAPY
     Route: 048
  3. CELLCEPT                           /01275102/ [Concomitant]
     Dosage: 500 MG, UNKNOWN/D
     Route: 048
  4. SIMULECT [Concomitant]
     Indication: IMMUNOSUPPRESSANT DRUG THERAPY
     Route: 065
  5. PREDNISOLONE [Concomitant]
     Indication: IMMUNOSUPPRESSANT DRUG THERAPY
     Route: 065

REACTIONS (4)
  - Diffuse large B-cell lymphoma [Fatal]
  - Leiomyosarcoma [Fatal]
  - Cytomegalovirus infection [Unknown]
  - Small intestinal perforation [Unknown]
